FAERS Safety Report 5039061-8 (Version None)
Quarter: 2006Q2

REPORT INFORMATION
  Report Type: 
  Country: None (occurrence: None)
  Receive Date: 20060623
  Receipt Date: 20060608
  Transmission Date: 20061013
  Serious: Yes (Death)
  Sender: FDA-Public Use
  Company Number: SPV1-2006-00029

PATIENT
  Age: 28 Year
  Sex: Male

DRUGS (1)
  1. ADDERALL 10 [Suspect]

REACTIONS (8)
  - ACUTE MYOCARDIAL INFARCTION [None]
  - ACUTE PULMONARY OEDEMA [None]
  - CARDIOTOXICITY [None]
  - COMA [None]
  - DRUG ABUSER [None]
  - MUSCULOSKELETAL PAIN [None]
  - PAIN IN EXTREMITY [None]
  - SUDDEN DEATH [None]
